FAERS Safety Report 9266895 (Version 1)
Quarter: 2013Q2

REPORT INFORMATION
  Report Type: Spontaneous
  Country: IT (occurrence: IT)
  Receive Date: 20130502
  Receipt Date: 20130502
  Transmission Date: 20140414
  Serious: Yes (Hospitalization)
  Sender: FDA-Public Use
  Company Number: IT-JNJFOC-20130414658

PATIENT
  Age: 64 Year
  Sex: Male

DRUGS (2)
  1. PATROL [Suspect]
     Indication: BACK PAIN
     Dosage: 3-6 TABLETS PER DAY
     Route: 048
     Dates: start: 20130307, end: 20130317
  2. OXYGEN [Concomitant]
     Indication: CHRONIC OBSTRUCTIVE PULMONARY DISEASE
     Route: 055

REACTIONS (3)
  - Sopor [Recovering/Resolving]
  - Dyspnoea [Recovering/Resolving]
  - Respiratory failure [Recovering/Resolving]
